FAERS Safety Report 6574310-6 (Version None)
Quarter: 2010Q1

REPORT INFORMATION
  Report Type: 
  Country: None (occurrence: None)
  Receive Date: 20100208
  Receipt Date: 20100202
  Transmission Date: 20100710
  Serious: Yes (Hospitalization)
  Sender: FDA-Public Use
  Company Number: IT-BAYER-200942887GPV

PATIENT
  Age: 17 Year
  Sex: Female

DRUGS (2)
  1. ASPIRIN [Suspect]
     Indication: OROPHARYNGEAL PAIN
     Dosage: TOTAL DAILY DOSE: 1 DF
     Route: 048
     Dates: start: 20090505, end: 20090505
  2. FROBEN [Suspect]
     Indication: OROPHARYNGEAL PAIN
     Dosage: TOTAL DAILY DOSE: 1 DF
     Route: 049
     Dates: start: 20090505, end: 20090505

REACTIONS (8)
  - ANAPHYLACTIC REACTION [None]
  - ANGIOEDEMA [None]
  - ERYTHEMA [None]
  - HEADACHE [None]
  - NAUSEA [None]
  - PARAESTHESIA [None]
  - URTICARIA [None]
  - VOMITING [None]
